FAERS Safety Report 14194154 (Version 1)
Quarter: 2017Q4

REPORT INFORMATION
  Report Type: Spontaneous
  Country: US (occurrence: None)
  Receive Date: 20171115
  Receipt Date: 20171115
  Transmission Date: 20180321
  Serious: Yes (Hospitalization)
  Sender: FDA-Public Use
  Company Number: None

PATIENT
  Age: 79 Year
  Sex: Male

DRUGS (1)
  1. JAKAFI [Suspect]
     Active Substance: RUXOLITINIB
     Indication: MYELOPROLIFERATIVE NEOPLASM
     Route: 048
     Dates: start: 20161027

REACTIONS (5)
  - Staphylococcal infection [None]
  - Weight decreased [None]
  - Swelling [None]
  - Oedema [None]
  - Pneumonia [None]

NARRATIVE: CASE EVENT DATE: 20171107
